FAERS Safety Report 9492037 (Version 2)
Quarter: 2013Q4

REPORT INFORMATION
  Report Type: Report from Study
  Country: US (occurrence: US)
  Receive Date: 20130830
  Receipt Date: 20131119
  Transmission Date: 20140711
  Serious: Yes (Other)
  Sender: FDA-Public Use
  Company Number: US-MYLANLABS-2013S1019101

PATIENT
  Age: 25 Year
  Sex: Female

DRUGS (3)
  1. AMNESTEEM CAPSULES [Suspect]
     Dates: start: 2013, end: 20130811
  2. CLARAVIS [Suspect]
     Dates: start: 20130129, end: 2013
  3. DEPO PROVERA [Concomitant]
     Route: 030

REACTIONS (1)
  - Exposure during pregnancy [Not Recovered/Not Resolved]
